FAERS Safety Report 5196509-6 (Version None)
Quarter: 2006Q4

REPORT INFORMATION
  Report Type: 
  Country: None (occurrence: None)
  Receive Date: 20061227
  Receipt Date: 20061212
  Transmission Date: 20070319
  Serious: Yes (Life-Threatening, Hospitalization)
  Sender: FDA-Public Use
  Company Number: GXKR2006PL08114

PATIENT
  Age: 29 Year
  Sex: Male

DRUGS (1)
  1. RIFAMPICIN [Suspect]
     Indication: INCORRECT DOSE ADMINISTERED
     Dosage: 30 G (100 TABLETS), ORAL
     Route: 048

REACTIONS (13)
  - ACUTE MYOCARDIAL INFARCTION [None]
  - ASPARTATE AMINOTRANSFERASE INCREASED [None]
  - BLOOD BILIRUBIN INCREASED [None]
  - ECHOCARDIOGRAM ABNORMAL [None]
  - HYPERGLYCAEMIA [None]
  - HYPOKINESIA [None]
  - HYPOTENSION [None]
  - INTENTIONAL OVERDOSE [None]
  - LEUKOCYTOSIS [None]
  - LIVER DISORDER [None]
  - NEUTROPHIL COUNT INCREASED [None]
  - SKIN DISCOLOURATION [None]
  - VOMITING [None]
